FAERS Safety Report 10677065 (Version 1)
Quarter: 2014Q4

REPORT INFORMATION
  Report Type: Spontaneous
  Country: JP (occurrence: JP)
  Receive Date: 20141226
  Receipt Date: 20141226
  Transmission Date: 20150529
  Serious: Yes (Other)
  Sender: FDA-Public Use
  Company Number: JP-BAYER-2014-187850

PATIENT
  Age: 86 Year
  Sex: Male

DRUGS (14)
  1. ARICEPT [Concomitant]
     Active Substance: DONEPEZIL HYDROCHLORIDE
     Dosage: DAILY DOSE 5 MG
     Route: 048
  2. BAYASPIRIN [Suspect]
     Active Substance: ASPIRIN
     Dosage: 100 MG, UNK
     Route: 048
  3. MAGMITT [Concomitant]
     Active Substance: MAGNESIUM OXIDE
     Dosage: DAILY DOSE 750 MG
     Route: 048
  4. LOXONIN [Concomitant]
     Active Substance: LOXOPROFEN SODIUM
     Dosage: 60 MG, PRN
     Route: 048
  5. FLOMOX [Interacting]
     Active Substance: CEFCAPENE PIVOXIL HYDROCHLORIDE HYDRATE
     Indication: RESPIRATORY DISORDER
     Dosage: 300 MG, UNK
     Route: 048
  6. PARIET [Concomitant]
     Active Substance: RABEPRAZOLE SODIUM
     Dosage: DAILY DOSE 10 MG
     Route: 048
  7. WARFARIN [Interacting]
     Active Substance: WARFARIN
     Dosage: 2 MG, UNK
     Route: 048
  8. LYRICA [Suspect]
     Active Substance: PREGABALIN
     Indication: BACK PAIN
     Dosage: 150 MG, UNK
     Route: 048
  9. HALCION [Suspect]
     Active Substance: TRIAZOLAM
     Dosage: 125 MG, UNK
     Route: 048
  10. AMARYL [Concomitant]
     Active Substance: GLIMEPIRIDE
     Dosage: 1 MG, UNK
     Route: 048
  11. CRESTOR [Concomitant]
     Active Substance: ROSUVASTATIN CALCIUM
     Dosage: DAILY DOSE 2.5 MG
     Route: 048
  12. MAINTATE [Concomitant]
     Active Substance: BISOPROLOL FUMARATE
     Dosage: 2.5 MG, UNK
     Route: 048
  13. PREMINENT [Concomitant]
     Active Substance: HYDROCHLOROTHIAZIDE\LOSARTAN POTASSIUM
     Dosage: 1 DF, UNK
     Route: 048
  14. LASIX [Concomitant]
     Active Substance: FUROSEMIDE
     Indication: OEDEMA PERIPHERAL
     Dosage: DAILY DOSE 20 MG
     Route: 048

REACTIONS (5)
  - Fall [None]
  - Dizziness [None]
  - Subdural haematoma [None]
  - Decreased appetite [None]
  - Drug interaction [None]
